FAERS Safety Report 5788894-9 (Version None)
Quarter: 2008Q2

REPORT INFORMATION
  Report Type: 
  Country: None (occurrence: None)
  Receive Date: 20080626
  Receipt Date: 20071206
  Transmission Date: 20081010
  Serious: No
  Sender: FDA-Public Use
  Company Number: US-ASTRAZENECA-2007UW27848

PATIENT
  Age: 81 Year
  Sex: Male
  Weight: 86.2 kg

DRUGS (6)
  1. PULMICORT RESPULES [Suspect]
     Indication: CHRONIC OBSTRUCTIVE PULMONARY DISEASE
     Route: 055
     Dates: start: 20070301
  2. BENAZEPRIL HYDROCHLORIDE [Concomitant]
  3. OMEPRAZOLE [Concomitant]
  4. ALBUTEROL BROMIDE [Concomitant]
  5. ALBUTEROL SULFIDE [Concomitant]
  6. SEREVENT [Concomitant]

REACTIONS (1)
  - PRURITUS [None]
